FAERS Safety Report 24089645 (Version 1)
Quarter: 2024Q3

REPORT INFORMATION
  Report Type: Spontaneous
  Country: CN (occurrence: CN)
  Receive Date: 20240715
  Receipt Date: 20240715
  Transmission Date: 20241016
  Serious: Yes (Disabling, Other)
  Sender: SANOFI AVENTIS
  Company Number: CN-SA-SAC20240709000240

PATIENT
  Age: 75 Year
  Sex: Female
  Weight: 54 kg

DRUGS (3)
  1. DOCETAXEL [Suspect]
     Active Substance: DOCETAXEL\DOCETAXEL ANHYDROUS
     Indication: Breast cancer
     Dosage: 110 MG, QD
     Route: 041
     Dates: start: 20240623, end: 20240623
  2. CYCLOPHOSPHAMIDE [Suspect]
     Active Substance: CYCLOPHOSPHAMIDE
     Indication: Breast cancer
     Dosage: 0.8 G, QD
     Dates: start: 20240623, end: 20240623
  3. ANF-RHO [Concomitant]
     Active Substance: ANF-RHO
     Indication: White blood cell count decreased
     Dosage: 6 MG
     Dates: start: 20240625

REACTIONS (6)
  - Renal hydrocele [Recovering/Resolving]
  - C-reactive protein increased [Recovering/Resolving]
  - Perinephritis [Recovering/Resolving]
  - Platelet count decreased [Recovering/Resolving]
  - Anaemia [Recovering/Resolving]
  - Pyrexia [Recovering/Resolving]

NARRATIVE: CASE EVENT DATE: 20240626
